FAERS Safety Report 18258639 (Version 1)
Quarter: 2020Q3

REPORT INFORMATION
  Report Type: Spontaneous
  Country: FR (occurrence: FR)
  Receive Date: 20200911
  Receipt Date: 20200911
  Transmission Date: 20201103
  Serious: Yes (Hospitalization)
  Sender: FDA-Public Use
  Company Number: FR-ASTRAZENECA-2020SF13426

PATIENT
  Age: 49 Year
  Sex: Male

DRUGS (2)
  1. SALICYLIC ACID. [Suspect]
     Active Substance: SALICYLIC ACID
     Indication: MYOCARDIAL INFARCTION
     Route: 065
  2. TICAGRELOR. [Suspect]
     Active Substance: TICAGRELOR
     Indication: MYOCARDIAL INFARCTION
     Route: 048

REACTIONS (5)
  - Postoperative wound infection [Unknown]
  - Superinfection bacterial [Unknown]
  - Post procedural haemorrhage [Unknown]
  - Post procedural haematoma [Unknown]
  - Bacterial infection [Unknown]
